FAERS Safety Report 7101811-4 (Version None)
Quarter: 2010Q4

REPORT INFORMATION
  Report Type: 
  Country: None (occurrence: None)
  Receive Date: 20101115
  Receipt Date: 20101101
  Transmission Date: 20110411
  Serious: Yes (Other)
  Sender: FDA-Public Use
  Company Number: PHHY2010CA59507

PATIENT
  Sex: Male

DRUGS (4)
  1. CLOZARIL [Suspect]
     Dosage: UNK
     Dates: start: 20021007
  2. LITHIUM [Concomitant]
  3. EPIVAL [Concomitant]
  4. LAMICTAL [Concomitant]

REACTIONS (3)
  - BASAL CELL CARCINOMA [None]
  - NEOPLASM MALIGNANT [None]
  - SURGERY [None]
